FAERS Safety Report 12582593 (Version 1)
Quarter: 2016Q3

REPORT INFORMATION
  Report Type: Report from Study
  Country: CO (occurrence: CO)
  Receive Date: 20160722
  Receipt Date: 20160722
  Transmission Date: 20161109
  Serious: Yes (Other)
  Sender: FDA-Public Use
  Company Number: CO-JNJFOC-20160713133

PATIENT
  Sex: Male

DRUGS (1)
  1. IMBRUVICA [Suspect]
     Active Substance: IBRUTINIB
     Indication: CHRONIC LYMPHOCYTIC LEUKAEMIA
     Route: 048
     Dates: start: 20151106, end: 20160602

REACTIONS (4)
  - Hypogammaglobulinaemia [Unknown]
  - Blood creatinine increased [Unknown]
  - Viral infection [Unknown]
  - Proteinuria [Unknown]

NARRATIVE: CASE EVENT DATE: 20160602
